FAERS Safety Report 12859668 (Version 1)
Quarter: 2016Q4

REPORT INFORMATION
  Report Type: Report from Study
  Country: ES (occurrence: ES)
  Receive Date: 20161018
  Receipt Date: 20161018
  Transmission Date: 20170207
  Serious: Yes (Hospitalization)
  Sender: FDA-Public Use
  Company Number: ES-B.I. PHARMACEUTICALS,INC./RIDGEFIELD-2016-BI-066041

PATIENT
  Age: 70 Year
  Sex: Male
  Weight: 76.5 kg

DRUGS (1)
  1. BLINDED DABIGATRAN [Suspect]
     Active Substance: DABIGATRAN ETEXILATE
     Indication: EMBOLIC STROKE
     Route: 048
     Dates: start: 20161001

REACTIONS (1)
  - Paranasal cyst [Unknown]

NARRATIVE: CASE EVENT DATE: 20161004
